FAERS Safety Report 9858644 (Version 1)
Quarter: 2014Q1

REPORT INFORMATION
  Report Type: Spontaneous
  Country: US (occurrence: US)
  Receive Date: 20140131
  Receipt Date: 20140131
  Transmission Date: 20141002
  Serious: No
  Sender: FDA-Public Use
  Company Number: US-BAYER-2014-014360

PATIENT
  Age: 68 Year
  Sex: Female
  Weight: 44.44 kg

DRUGS (1)
  1. ALEVE TABLET [Suspect]
     Indication: ANALGESIC THERAPY
     Dosage: 1 DF, BID
     Route: 048
     Dates: start: 201401

REACTIONS (3)
  - Glossodynia [Recovered/Resolved]
  - Wrong technique in drug usage process [None]
  - Drug ineffective [None]
